FAERS Safety Report 9498487 (Version 3)
Quarter: 2014Q1

REPORT INFORMATION
  Report Type: Spontaneous
  Country: US (occurrence: US)
  Receive Date: 20130904
  Receipt Date: 20140122
  Transmission Date: 20141002
  Serious: No
  Sender: FDA-Public Use
  Company Number: US-BRISTOL-MYERS SQUIBB COMPANY-19223361

PATIENT
  Age: 66 Year
  Sex: Male
  Weight: 97.5 kg

DRUGS (10)
  1. ELIQUIS [Suspect]
  2. COUMADIN [Suspect]
  3. ASPIRIN [Concomitant]
  4. VALSARTAN [Concomitant]
     Dosage: 1DF:160/25 MG
  5. NEXIUM [Concomitant]
  6. DIGOXIN [Concomitant]
  7. METOPROLOL [Concomitant]
  8. MAGNESIUM [Concomitant]
  9. POTASSIUM [Concomitant]
  10. LIPITOR [Concomitant]

REACTIONS (1)
  - International normalised ratio fluctuation [Unknown]
